FAERS Safety Report 9425934 (Version 2)
Quarter: 2013Q3

REPORT INFORMATION
  Report Type: Report from Study
  Country: JP (occurrence: JP)
  Receive Date: 20130729
  Receipt Date: 20130823
  Transmission Date: 20140515
  Serious: Yes (Death)
  Sender: FDA-Public Use
  Company Number: JP-SANOFI-AVENTIS-2013SA075407

PATIENT
  Age: 78 Year
  Sex: Male
  Weight: 46 kg

DRUGS (8)
  1. PLAVIX [Suspect]
     Indication: ACUTE MYOCARDIAL INFARCTION
     Route: 048
     Dates: start: 20120624, end: 20120624
  2. PLAVIX [Suspect]
     Indication: ACUTE MYOCARDIAL INFARCTION
     Route: 048
     Dates: start: 20120625, end: 20130118
  3. ASPIRIN [Concomitant]
     Indication: ACUTE MYOCARDIAL INFARCTION
     Route: 048
     Dates: start: 20120624
  4. HEPARIN [Concomitant]
     Indication: ACUTE MYOCARDIAL INFARCTION
     Dosage: DOSE:15000 UNIT(S)
     Route: 042
     Dates: start: 20120624, end: 20120626
  5. PARIET [Concomitant]
     Indication: PROPHYLAXIS
     Route: 048
     Dates: start: 20120624
  6. ITOROL [Concomitant]
     Indication: ACUTE MYOCARDIAL INFARCTION
     Route: 048
     Dates: start: 20120625
  7. CRESTOR [Concomitant]
     Route: 048
     Dates: start: 20120706, end: 20121112
  8. BASEN [Concomitant]
     Route: 048
     Dates: start: 20120706

REACTIONS (8)
  - Enterocolitis [Fatal]
  - Aspartate aminotransferase increased [Fatal]
  - Alanine aminotransferase increased [Fatal]
  - Gamma-glutamyltransferase increased [Fatal]
  - Blood alkaline phosphatase increased [Fatal]
  - Blood urea increased [Fatal]
  - Blood creatinine increased [Fatal]
  - White blood cell count increased [Fatal]
